FAERS Safety Report 6157735-2 (Version None)
Quarter: 2009Q2

REPORT INFORMATION
  Report Type: 
  Country: None (occurrence: None)
  Receive Date: 20090414
  Receipt Date: 20090402
  Transmission Date: 20091009
  Serious: Yes (Hospitalization)
  Sender: FDA-Public Use
  Company Number: CLOF-1000158

PATIENT
  Age: 71 Year
  Sex: Female
  Weight: 55 kg

DRUGS (4)
  1. CLOFARABINE BLINDED (CODE NOT BROKEN) [Suspect]
     Indication: ACUTE MYELOID LEUKAEMIA
     Dosage: BINDED, INFORMATION WITHHELD
     Dates: start: 20080130, end: 20080203
  2. CLOFARABINE BLINDED (CODE NOT BROKEN) [Suspect]
     Indication: ACUTE MYELOID LEUKAEMIA
     Dosage: BINDED, INFORMATION WITHHELD
     Dates: start: 20080307, end: 20080310
  3. CYTARABINE [Suspect]
     Indication: ACUTE MYELOID LEUKAEMIA
     Dosage: 1 G/M2, QDX5, INTRAVENOUS; 1 G/M2, QD, INTRAVENOUS
     Route: 042
     Dates: start: 20080130, end: 20080203
  4. CYTARABINE [Suspect]
     Indication: ACUTE MYELOID LEUKAEMIA
     Dosage: 1 G/M2, QDX5, INTRAVENOUS; 1 G/M2, QD, INTRAVENOUS
     Route: 042
     Dates: start: 20080307, end: 20080310

REACTIONS (8)
  - ALANINE AMINOTRANSFERASE INCREASED [None]
  - ASCITES [None]
  - ASPARTATE AMINOTRANSFERASE INCREASED [None]
  - BLOOD ALBUMIN DECREASED [None]
  - BLOOD PRESSURE SYSTOLIC DECREASED [None]
  - BONE MARROW FAILURE [None]
  - CARDIAC FAILURE CONGESTIVE [None]
  - PLEURAL EFFUSION [None]
